FAERS Safety Report 7216864-2 (Version None)
Quarter: 2010Q4

REPORT INFORMATION
  Report Type: 
  Country: None (occurrence: None)
  Receive Date: 20101230
  Receipt Date: 20101215
  Transmission Date: 20110411
  Serious: Yes (Other)
  Sender: FDA-Public Use
  Company Number: 2010MA005435

PATIENT
  Age: 54 Year
  Sex: Male

DRUGS (5)
  1. AMLODIPINE BESYLATE [Suspect]
     Dosage: 10 MG; QD;
  2. DOXAZOSIN MESYLATE [Suspect]
     Dosage: 8 MG; BID;
  3. LISINOPRIL [Concomitant]
  4. ATENOLOL [Concomitant]
  5. BENDROFLUMETHIAZIDE [Concomitant]

REACTIONS (3)
  - ANGIODYSPLASIA [None]
  - BLOOD PRESSURE INADEQUATELY CONTROLLED [None]
  - REFUSAL OF TREATMENT BY PATIENT [None]
